FAERS Safety Report 6656342-2 (Version None)
Quarter: 2010Q1

REPORT INFORMATION
  Report Type: 
  Country: None (occurrence: None)
  Receive Date: 20100329
  Receipt Date: 20100319
  Transmission Date: 20100710
  Serious: Yes (Hospitalization, Other)
  Sender: FDA-Public Use
  Company Number: FR-ABBOTT-10P-056-0633514-00

PATIENT
  Age: 56 Year
  Sex: Male

DRUGS (6)
  1. DEPAKENE [Suspect]
     Indication: EPILEPSY
  2. CORDARONE [Suspect]
     Indication: ARRHYTHMIA
     Route: 048
     Dates: start: 20100305, end: 20100305
  3. CORDARONE [Suspect]
     Route: 048
     Dates: start: 20100306, end: 20100309
  4. CLAMOXYL [Concomitant]
     Indication: DRUG USE FOR UNKNOWN INDICATION
     Dates: start: 20100201, end: 20100309
  5. GENTAMICIN [Concomitant]
     Indication: DRUG USE FOR UNKNOWN INDICATION
     Dates: start: 20100201
  6. SERESTA [Concomitant]
     Indication: DEPRESSION
     Dates: end: 20100309

REACTIONS (2)
  - CYTOLYTIC HEPATITIS [None]
  - HEPATOCELLULAR INJURY [None]
